FAERS Safety Report 7378241-3 (Version None)
Quarter: 2011Q1

REPORT INFORMATION
  Report Type: 
  Country: None (occurrence: None)
  Receive Date: 20110328
  Receipt Date: 20110317
  Transmission Date: 20110831
  Serious: Yes (Death, Life-Threatening, Hospitalization)
  Sender: FDA-Public Use
  Company Number: B0703302A

PATIENT
  Sex: Female
  Weight: 58 kg

DRUGS (8)
  1. ARIXTRA [Suspect]
     Indication: THROMBOSIS PROPHYLAXIS
     Dosage: 2.5MG PER DAY
     Route: 058
     Dates: start: 20110113, end: 20110224
  2. XANAX [Concomitant]
     Indication: DEPRESSION
     Dosage: .25MG PER DAY
     Route: 048
     Dates: start: 20110113, end: 20110224
  3. ALDACTONE [Concomitant]
     Dosage: 25MG PER DAY
     Route: 048
     Dates: start: 20110113, end: 20110224
  4. IMOVANE [Concomitant]
     Indication: INSOMNIA
     Dosage: 7.5MG PER DAY
     Route: 048
     Dates: start: 20110113, end: 20110124
  5. ANTIBIOTIC [Concomitant]
  6. SOTALOL HCL [Concomitant]
     Dosage: 40MG PER DAY
     Route: 048
     Dates: start: 20110113, end: 20110226
  7. DAFALGAN [Concomitant]
     Indication: PAIN
     Dosage: 1G THREE TIMES PER DAY
     Route: 048
     Dates: start: 20110113, end: 20110224
  8. LEVOTHYROX [Concomitant]
     Indication: HYPOTHYROIDISM
     Dosage: 100MCG PER DAY
     Route: 048
     Dates: start: 20110113, end: 20110226

REACTIONS (8)
  - DEPRESSED LEVEL OF CONSCIOUSNESS [None]
  - INCORRECT DRUG ADMINISTRATION DURATION [None]
  - SOMNOLENCE [None]
  - ALTERED STATE OF CONSCIOUSNESS [None]
  - CONFUSIONAL STATE [None]
  - CEREBRAL HAEMORRHAGE [None]
  - DISTURBANCE IN ATTENTION [None]
  - SUBARACHNOID HAEMORRHAGE [None]
